FAERS Safety Report 7799549-3 (Version None)
Quarter: 2011Q4

REPORT INFORMATION
  Report Type: 
  Country: None (occurrence: None)
  Receive Date: 20111006
  Receipt Date: 20111006
  Transmission Date: 20120403
  Serious: Yes (Hospitalization)
  Sender: FDA-Public Use
  Company Number: None

PATIENT
  Age: 55 Year
  Sex: Male
  Weight: 74.842 kg

DRUGS (8)
  1. XELODA [Concomitant]
  2. DECADRON [Concomitant]
  3. GABAPENTIN [Concomitant]
     Indication: ADENOCARCINOMA
  4. ACYCLOVIR [Concomitant]
     Route: 048
  5. CETUXIMAB [Suspect]
     Indication: ADENOCARCINOMA
     Dosage: 500MG/M2
     Route: 041
     Dates: start: 20110831, end: 20110921
  6. CETUXIMAB [Suspect]
     Indication: CHEMOTHERAPY
     Dosage: 500MG/M2
     Route: 041
     Dates: start: 20110831, end: 20110921
  7. ZOFRAN [Concomitant]
     Route: 048
  8. OXALIPLATIN [Concomitant]
     Indication: CHEMOTHERAPY
     Dosage: 85MG/M2
     Route: 041
     Dates: start: 20110831, end: 20110921

REACTIONS (6)
  - WEIGHT DECREASED [None]
  - ORAL PAIN [None]
  - DIARRHOEA [None]
  - PYREXIA [None]
  - FATIGUE [None]
  - VOMITING [None]
